FAERS Safety Report 24675951 (Version 3)
Quarter: 2025Q2

REPORT INFORMATION
  Report Type: Spontaneous
  Country: BG (occurrence: BG)
  Receive Date: 20241128
  Receipt Date: 20250502
  Transmission Date: 20250717
  Serious: Yes (Hospitalization, Other)
  Sender: BRISTOL MYERS SQUIBB
  Company Number: BG-Medison-000719

PATIENT
  Age: 40 Year
  Sex: Female

DRUGS (4)
  1. IPILIMUMAB [Suspect]
     Active Substance: IPILIMUMAB
     Indication: Metastatic ocular melanoma
  2. NIVOLUMAB [Suspect]
     Active Substance: NIVOLUMAB
     Indication: Metastatic ocular melanoma
     Dates: start: 202403, end: 202406
  3. KIMMTRAK [Suspect]
     Active Substance: TEBENTAFUSP-TEBN
     Indication: Metastatic ocular melanoma
     Dosage: 68 MICROGRAM, WEEKLY
     Route: 042
     Dates: start: 20240930, end: 202410
  4. KIMMTRAK [Suspect]
     Active Substance: TEBENTAFUSP-TEBN
     Dosage: 100 MCG/0.5 ML (68 MICROGRAM, WEEKLY)
     Route: 042
     Dates: start: 20241022

REACTIONS (1)
  - Glucocorticoid deficiency [Recovered/Resolved]

NARRATIVE: CASE EVENT DATE: 20241001
